FAERS Safety Report 20579299 (Version 1)
Quarter: 2022Q1

REPORT INFORMATION
  Report Type: Spontaneous
  Country: CO (occurrence: CO)
  Receive Date: 20220310
  Receipt Date: 20220310
  Transmission Date: 20220424
  Serious: Yes (Hospitalization)
  Sender: FDA-Public Use
  Company Number: CO-PFIZER INC-202200376104

PATIENT
  Age: 64 Year
  Sex: Male

DRUGS (1)
  1. LYRICA [Suspect]
     Active Substance: PREGABALIN
     Indication: Generalised anxiety disorder
     Dosage: UNSPECIFIED FREQUENCY
     Route: 048
     Dates: start: 20200624

REACTIONS (1)
  - Myocardial ischaemia [Recovering/Resolving]

NARRATIVE: CASE EVENT DATE: 20220112
